FAERS Safety Report 7121808-8 (Version None)
Quarter: 2010Q4

REPORT INFORMATION
  Report Type: 
  Country: None (occurrence: None)
  Receive Date: 20101124
  Receipt Date: 20101111
  Transmission Date: 20110411
  Serious: Yes (Hospitalization, Other)
  Sender: FDA-Public Use
  Company Number: PHHY2010RU78795

PATIENT
  Sex: Female

DRUGS (4)
  1. SANDIMMUNE [Suspect]
     Indication: PSORIATIC ARTHROPATHY
     Dosage: 300 MG/DAY
  2. SANDIMMUNE [Suspect]
     Dosage: 150 MG/DAY
  3. FUROSEMIDE [Concomitant]
     Dosage: 40 MG/DAY
  4. SORBENTS [Concomitant]

REACTIONS (6)
  - ATRIAL SEPTAL DEFECT [None]
  - BRONCHITIS CHRONIC [None]
  - HEART DISEASE CONGENITAL [None]
  - HYPERTENSION [None]
  - NEPHROPATHY [None]
  - RENAL FAILURE CHRONIC [None]
